FAERS Safety Report 15082476 (Version 2)
Quarter: 2018Q4

REPORT INFORMATION
  Report Type: Spontaneous
  Country: US (occurrence: US)
  Receive Date: 20180628
  Receipt Date: 20181022
  Transmission Date: 20190204
  Serious: No
  Sender: FDA-Public Use
  Company Number: PHEH2018US026301

PATIENT
  Sex: Female

DRUGS (3)
  1. XELJANZ [Concomitant]
     Active Substance: TOFACITINIB CITRATE
     Indication: PRODUCT USED FOR UNKNOWN INDICATION
     Route: 065
  2. VOTRIENT [Suspect]
     Active Substance: PAZOPANIB HYDROCHLORIDE
     Indication: RHEUMATOID ARTHRITIS
     Dosage: 4 DF, QD
     Route: 048
  3. VOTRIENT [Suspect]
     Active Substance: PAZOPANIB HYDROCHLORIDE
     Dosage: 2 DF, QD
     Route: 065

REACTIONS (7)
  - Dyspnoea [Unknown]
  - Heart rate irregular [Unknown]
  - Anxiety [Unknown]
  - Depression [Unknown]
  - Diarrhoea [Not Recovered/Not Resolved]
  - Blister [Not Recovered/Not Resolved]
  - Asthenia [Unknown]
